FAERS Safety Report 11782741 (Version 2)
Quarter: 2016Q1

REPORT INFORMATION
  Report Type: Spontaneous
  Country: US (occurrence: US)
  Receive Date: 20151127
  Receipt Date: 20160111
  Transmission Date: 20160525
  Serious: No
  Sender: FDA-Public Use
  Company Number: US-PFIZER INC-2015403393

PATIENT
  Age: 4 Decade
  Sex: Female
  Weight: 107 kg

DRUGS (1)
  1. CHANTIX [Suspect]
     Active Substance: VARENICLINE TARTRATE
     Indication: SMOKING CESSATION THERAPY
     Dosage: 24 MG, UNK

REACTIONS (2)
  - Depressed mood [Unknown]
  - Overdose [Unknown]
